FAERS Safety Report 5117262-8 (Version None)
Quarter: 2006Q3

REPORT INFORMATION
  Report Type: 
  Country: None (occurrence: None)
  Receive Date: 20060929
  Receipt Date: 20060918
  Transmission Date: 20061208
  Serious: Yes (Disabling)
  Sender: FDA-Public Use
  Company Number: PHRM2006FR02618

PATIENT
  Age: 6 Month
  Sex: Female

DRUGS (3)
  1. TEGRETOL [Suspect]
     Indication: EPILEPSY
     Dosage: UNKNOWN MATERNAL DOSE
     Route: 064
  2. LAMICTAL [Suspect]
     Indication: EPILEPSY
     Dosage: UNKNOWN MATERNAL DOSE
     Route: 064
  3. SPECIAFOLDINE [Suspect]
     Dosage: UNKNOWN MATERNAL DOSE
     Route: 064

REACTIONS (5)
  - ATROPHY [None]
  - DRUG EXPOSURE DURING PREGNANCY [None]
  - LIVEDO RETICULARIS [None]
  - MYOPATHY [None]
  - POLAND'S SYNDROME [None]
